FAERS Safety Report 9031170 (Version 1)
Quarter: 2013Q1

REPORT INFORMATION
  Report Type: Spontaneous
  Country: US (occurrence: US)
  Receive Date: 20130123
  Receipt Date: 20130123
  Transmission Date: 20140127
  Serious: Yes (Other)
  Sender: FDA-Public Use
  Company Number: US-COVIDIEN/TYCO HEALTHCARE/MALLINCKRODT-T201300108

PATIENT
  Sex: Male

DRUGS (1)
  1. EXALGO EXTENDED RELEASE [Suspect]
     Indication: PRODUCT USED FOR UNKNOWN INDICATION
     Dosage: 32 MG, UNK
     Dates: start: 20130115

REACTIONS (5)
  - Formication [Unknown]
  - Dyspnoea [Unknown]
  - Hallucination [Unknown]
  - Vomiting [Unknown]
  - Headache [Unknown]
